FAERS Safety Report 4263893-7 (Version None)
Quarter: 2004Q1

REPORT INFORMATION
  Report Type: 
  Country: None (occurrence: None)
  Receive Date: 20040102
  Receipt Date: 20031218
  Transmission Date: 20041129
  Serious: Yes (Hospitalization)
  Sender: FDA-Public Use
  Company Number: 2003-111164-NL

PATIENT
  Age: 73 Year
  Sex: Male

DRUGS (3)
  1. VECURONIUM BROMIDE [Suspect]
     Indication: INDUCTION AND MAINTENANCE OF ANAESTHESIA
     Dosage: 4 MG ONCE/2 MG ONCE INTRAVENOUS (NOS)
     Route: 042
     Dates: start: 20031120, end: 20031120
  2. VECURONIUM BROMIDE [Suspect]
     Indication: INDUCTION AND MAINTENANCE OF ANAESTHESIA
     Dosage: 4 MG ONCE/2 MG ONCE INTRAVENOUS (NOS)
     Route: 042
     Dates: start: 20031120, end: 20031120
  3. PROPOFOL [Suspect]
     Indication: INDUCTION AND MAINTENANCE OF ANAESTHESIA
     Dosage: 100 MG INTRAVENOUS (NOS)
     Route: 042
     Dates: start: 20031120, end: 20031120

REACTIONS (1)
  - ANAPHYLACTIC REACTION [None]
